FAERS Safety Report 23656014 (Version 1)
Quarter: 2024Q1

REPORT INFORMATION
  Report Type: Spontaneous
  Country: US (occurrence: US)
  Receive Date: 20240321
  Receipt Date: 20240321
  Transmission Date: 20240410
  Serious: Yes (Other)
  Sender: FDA-Public Use
  Company Number: ENDG24-00500

PATIENT
  Sex: Male

DRUGS (8)
  1. PERCOCET [Suspect]
     Active Substance: ACETAMINOPHEN\OXYCODONE HYDROCHLORIDE
     Indication: Toothache
     Dosage: 10/325 MG, UNKNOWN (WHEN THE MEDICATION WAS FIRST PRESCRIBED HE SWALLOWED IT)
     Route: 048
     Dates: start: 20141101
  2. PERCOCET [Suspect]
     Active Substance: ACETAMINOPHEN\OXYCODONE HYDROCHLORIDE
     Dosage: UNK UNKNOWN, UNKNOWN (SNORTING THE PILLS)
     Route: 045
  3. PERCOCET [Suspect]
     Active Substance: ACETAMINOPHEN\OXYCODONE HYDROCHLORIDE
     Dosage: UNK UNKNOWN, UNKNOWN (INJECTING PERCOCET WITH A SYRINGE)
     Route: 051
  4. OXYCODONE [Suspect]
     Active Substance: OXYCODONE\OXYCODONE HYDROCHLORIDE
     Indication: Product used for unknown indication
     Dosage: UNK UNKNOWN, UNKNOWN
     Route: 065
  5. OXYCODONE [Suspect]
     Active Substance: OXYCODONE\OXYCODONE HYDROCHLORIDE
     Indication: Product used for unknown indication
     Dosage: UNK UNKNOWN, UNKNOWN
     Route: 065
  6. OXYCODONE [Suspect]
     Active Substance: OXYCODONE\OXYCODONE HYDROCHLORIDE
     Indication: Product used for unknown indication
     Dosage: UNK UNKNOWN, UNKNOWN
     Route: 065
  7. HYDROMORPHONE [Suspect]
     Active Substance: HYDROMORPHONE
     Indication: Product used for unknown indication
     Dosage: UNK UNKNOWN, UNKNOWN
     Route: 065
  8. FENTANYL [Suspect]
     Active Substance: FENTANYL\FENTANYL CITRATE
     Indication: Product used for unknown indication
     Dosage: UNK UNKNOWN, UNKNOWN
     Route: 065

REACTIONS (19)
  - Haematochezia [Not Recovered/Not Resolved]
  - Tuberculosis [Unknown]
  - Fall [Unknown]
  - Distractibility [Not Recovered/Not Resolved]
  - Gait disturbance [Not Recovered/Not Resolved]
  - Dysphemia [Not Recovered/Not Resolved]
  - Abscess [Not Recovered/Not Resolved]
  - Dysarthria [Not Recovered/Not Resolved]
  - Vision blurred [Not Recovered/Not Resolved]
  - Night sweats [Unknown]
  - Drug abuse [Unknown]
  - Dependence [Not Recovered/Not Resolved]
  - Tremor [Unknown]
  - Overdose [Unknown]
  - Drug hypersensitivity [Not Recovered/Not Resolved]
  - Decreased appetite [Not Recovered/Not Resolved]
  - Diarrhoea [Not Recovered/Not Resolved]
  - Drug ineffective [Unknown]
  - Ill-defined disorder [Not Recovered/Not Resolved]
